FAERS Safety Report 16987324 (Version 1)
Quarter: 2019Q4

REPORT INFORMATION
  Report Type: Spontaneous
  Country: NL (occurrence: NL)
  Receive Date: 20191102
  Receipt Date: 20191102
  Transmission Date: 20200122
  Serious: Yes (Hospitalization)
  Sender: FDA-Public Use
  Company Number: NL-TEVA-2019-NL-1130759

PATIENT
  Age: 89 Year
  Sex: Female
  Weight: 62.8 kg

DRUGS (8)
  1. ENALAPRIL TABLET, 20 MG (MILLIGRAM) [Suspect]
     Active Substance: ENALAPRIL
     Indication: HYPERTENSION
     Dosage: 1X PER DAY 1 PIECE, 20 MG
     Dates: start: 20181122, end: 20191010
  2. MACROGOL/ZOUTEN PDR V DRANK (MOVIC/MOLAX/LAXT/GEN) [Concomitant]
     Dosage: IF NECESSARY 1 X PER DAY 1 PIECE
     Dates: start: 20190902
  3. MIRTAZAPINE TABLET, 15 MG (MILLIGRAM) [Suspect]
     Active Substance: MIRTAZAPINE
     Indication: DEPRESSED MOOD
     Dosage: 1X PER DAY 1 PIECE (15 MG)
     Dates: start: 20190508, end: 20191008
  4. TEMAZEPAM CAPSULE 10MG [Concomitant]
     Dosage: IF NECESSARY 1 X PER DAY 1 PIECE
     Dates: start: 20191008
  5. FRAGMIN 2500 INJVLST WWSP 0,2ML [Concomitant]
     Dosage: 1 X PER DAY 1 PIECE
     Dates: start: 20191008
  6. COLECALCIFEROL CAPSULE 5600IE [Concomitant]
     Dosage: 1 X PER WEEK (THURSDAY) 1 PIECE, 5600 IU
     Dates: start: 20191008
  7. PARACETAMOL TABLET 1000MG [Concomitant]
     Dosage: IF NECESSARY 4 X PER DAY 1 PIECE, 1000 MG
     Dates: start: 20191008
  8. COLECALCIFEROL TABLET 800IE [Concomitant]
     Dosage: 1 X PER DAY 1 PIECE (STOPPED) FROM RECORDING 8-10-2019, 800 IU
     Dates: start: 20190902, end: 20191008

REACTIONS (1)
  - Hyponatraemia [Recovered/Resolved]

NARRATIVE: CASE EVENT DATE: 20190821
